FAERS Safety Report 7067496-0 (Version None)
Quarter: 2010Q4

REPORT INFORMATION
  Report Type: 
  Country: None (occurrence: None)
  Receive Date: 20101020
  Receipt Date: 20101013
  Transmission Date: 20110411
  Serious: Yes (Hospitalization)
  Sender: FDA-Public Use
  Company Number: ABCOW-10-0406

PATIENT
  Age: 65 Year
  Sex: Female

DRUGS (6)
  1. ABRAXANE [Suspect]
     Indication: BREAST CANCER METASTATIC
     Dosage: RECEIVED FOR 9 MONTHS TOTAL, INTRAVENOUS
     Route: 042
  2. AVASTIN [Concomitant]
  3. IRON (IRON) [Concomitant]
  4. LEVAQUIN [Concomitant]
  5. LASIX [Concomitant]
  6. POTASSIUM (POTASSIUM) [Concomitant]

REACTIONS (3)
  - ADHESION [None]
  - ASCITES [None]
  - HEPATIC CIRRHOSIS [None]
